FAERS Safety Report 9387065 (Version 2)
Quarter: 2013Q3

REPORT INFORMATION
  Report Type: Report from Study
  Country: DE (occurrence: DE)
  Receive Date: 20130708
  Receipt Date: 20130722
  Transmission Date: 20140515
  Serious: Yes (Hospitalization)
  Sender: FDA-Public Use
  Company Number: PHHY2013DE067433

PATIENT
  Sex: Female
  Weight: 89 kg

DRUGS (6)
  1. METFORMIN, VILDAGLIPTIN [Suspect]
     Indication: TYPE 2 DIABETES MELLITUS
     Dosage: 1 DF (2000 MG METF AND 100 MG VILD), DAILY
     Dates: start: 20121002
  2. AMLODIPINE [Suspect]
     Indication: HYPERTENSION
     Dosage: 5 MG, DAILY
     Dates: start: 20080423, end: 20121113
  3. AMLODIPINE [Suspect]
     Dosage: 10 MG, DAILY
     Dates: start: 20121113
  4. BISOPROLOL [Suspect]
     Indication: HYPERTENSION
     Dosage: 5 MG, DAILY
     Dates: start: 20080423, end: 20130222
  5. NEBIVOLOL AL [Concomitant]
     Indication: HYPERTENSION
     Dosage: 5 MG, DAILY
     Dates: start: 20130122
  6. L-THYROXINE [Concomitant]
     Indication: HYPOTHYROIDISM
     Dosage: 125 UG, DAILY
     Dates: start: 19941110

REACTIONS (7)
  - Atrial fibrillation [Recovered/Resolved]
  - Palpitations [Unknown]
  - Dyspnoea [Unknown]
  - Chest discomfort [Unknown]
  - Chest pain [Unknown]
  - Electrocardiogram abnormal [Unknown]
  - Angina unstable [Recovered/Resolved]
